FAERS Safety Report 24623936 (Version 1)
Quarter: 2024Q4

REPORT INFORMATION
  Report Type: Spontaneous
  Country: US (occurrence: None)
  Receive Date: 20241115
  Receipt Date: 20241115
  Transmission Date: 20250115
  Serious: No
  Sender: Public
  Company Number: None

PATIENT
  Age: 55 Year
  Sex: Female
  Weight: 74 kg

DRUGS (1)
  1. NIRMATRELVIR\RITONAVIR [Suspect]
     Active Substance: NIRMATRELVIR\RITONAVIR
     Dosage: 1.00 MG TWICE A DAY ORAL
     Route: 048
     Dates: start: 20240925

REACTIONS (3)
  - Hyperhidrosis [None]
  - Vomiting [None]
  - Taste disorder [None]

NARRATIVE: CASE EVENT DATE: 20240927
